FAERS Safety Report 25060813 (Version 7)
Quarter: 2025Q4

REPORT INFORMATION
  Report Type: Report from Study
  Country: US (occurrence: None)
  Receive Date: 20250310
  Receipt Date: 20251110
  Transmission Date: 20260118
  Serious: Yes (Other)
  Sender: UCB
  Company Number: US-UCBSA-2025012428

PATIENT
  Age: 27 Year
  Weight: 58.51 kg

DRUGS (25)
  1. FENFLURAMINE [Suspect]
     Active Substance: FENFLURAMINE
     Indication: Lennox-Gastaut syndrome
     Dosage: UNK
  2. FENFLURAMINE [Suspect]
     Active Substance: FENFLURAMINE
     Indication: Seizure
     Dosage: 2.5 MILLILITER, 2X/DAY (BID)
  3. FENFLURAMINE [Suspect]
     Active Substance: FENFLURAMINE
     Indication: Severe myoclonic epilepsy of infancy
     Dosage: 2.5 MILLILITER, 2X/DAY (BID)
  4. FENFLURAMINE [Suspect]
     Active Substance: FENFLURAMINE
     Dosage: 2.5 MILLILITER, 2X/DAY (BID)
  5. FENFLURAMINE [Suspect]
     Active Substance: FENFLURAMINE
     Dosage: 4 MILLILITER, 2X/DAY (BID)
  6. NAYZILAM [Suspect]
     Active Substance: MIDAZOLAM
     Indication: Seizure
     Dosage: SPRAY 1 SPRAY IN ONE NOSTRIL AND AFTER 10 MINUTES IN ANOTHER NOSTRIL
  7. NAYZILAM [Suspect]
     Active Substance: MIDAZOLAM
     Dosage: SPRAY 1 SPRAY IN ONE NOSTRIL AND AFTER 10 MINUTES IN ANOTHER NOSTRIL
  8. NAYZILAM [Suspect]
     Active Substance: MIDAZOLAM
     Dosage: SPRAY 1 SPRAY IN ONE NOSTRIL AND AFTER 10 MINUTES IN ANOTHER NOSTRIL
  9. OMEPRAZOLE [Concomitant]
     Active Substance: OMEPRAZOLE
     Indication: Product used for unknown indication
     Dosage: 20 MILLIGRAM, ONCE DAILY (QD)
  10. ALBUTEROL SULFATE [Concomitant]
     Active Substance: ALBUTEROL SULFATE
     Indication: Product used for unknown indication
     Dosage: INHALE 3 MILLILITER BY NEBULIZATION ROUTE EVERY 4-6 HOURS
  11. ONFI [Concomitant]
     Active Substance: CLOBAZAM
     Indication: Product used for unknown indication
     Dosage: 15 MILLIGRAM, 2X/DAY (BID)
  12. ONFI [Concomitant]
     Active Substance: CLOBAZAM
     Dosage: EXTRA DOSE OF ONFI 1/2 PILL TWO DAY AM AND PM BEFORE MENSES AND 2 DAYS AFTER
  13. ONFI [Concomitant]
     Active Substance: CLOBAZAM
     Dosage: 15 MILLIGRAM, 3X/DAY (TID)
  14. Abiufy [Concomitant]
     Indication: Product used for unknown indication
     Dosage: 1 TABLET EVERY DAY
  15. Abiufy [Concomitant]
     Dosage: 1 TABLET EVERY DAY
  16. Abiufy [Concomitant]
     Dosage: 1 TABLET EVERY DAY
  17. Abiufy [Concomitant]
     Dosage: 1 TABLET EVERY DAY
  18. CLONIDINE HYDROCHLORIDE [Concomitant]
     Active Substance: CLONIDINE HYDROCHLORIDE
     Indication: Product used for unknown indication
     Dosage: EVERY NIGHT
  19. CLONIDINE HYDROCHLORIDE [Concomitant]
     Active Substance: CLONIDINE HYDROCHLORIDE
     Dosage: EVERY NIGHT
  20. CLONIDINE HYDROCHLORIDE [Concomitant]
     Active Substance: CLONIDINE HYDROCHLORIDE
     Dosage: 2 QHS
  21. CLONIDINE HYDROCHLORIDE [Concomitant]
     Active Substance: CLONIDINE HYDROCHLORIDE
     Dosage: 2 QHS
  22. PHENOBARBITAL [Concomitant]
     Active Substance: PHENOBARBITAL
     Indication: Product used for unknown indication
     Dosage: 30 MG AM AND 45 MG PM
  23. PHENOBARBITAL [Concomitant]
     Active Substance: PHENOBARBITAL
     Dosage: 30 MG AM AND 45 MG PM
  24. PHENOBARBITAL [Concomitant]
     Active Substance: PHENOBARBITAL
     Dosage: 30 MG AM AND 45 MG PM
  25. PHENOBARBITAL [Concomitant]
     Active Substance: PHENOBARBITAL
     Dosage: 30 MG AM AND 45 MG PM

REACTIONS (3)
  - Uterine leiomyoma [Unknown]
  - Tricuspid valve incompetence [Not Recovered/Not Resolved]
  - Epilepsy [Unknown]
